FAERS Safety Report 7397724-3 (Version None)
Quarter: 2011Q2

REPORT INFORMATION
  Report Type: 
  Country: None (occurrence: None)
  Receive Date: 20110406
  Receipt Date: 20110329
  Transmission Date: 20111010
  Serious: Yes (Hospitalization)
  Sender: FDA-Public Use
  Company Number: BR-MEDIMMUNE-MEDI-0013035

PATIENT
  Sex: Male
  Weight: 9.84 kg

DRUGS (8)
  1. RANITIDINE HYDROCHLORIDE [Concomitant]
     Indication: BURNING SENSATION
     Route: 048
  2. FERROGLYCINATE CHELATE [Concomitant]
     Indication: ANAEMIA PROPHYLAXIS
     Route: 048
  3. SYNAGIS [Suspect]
     Indication: BRONCHOPULMONARY DYSPLASIA
     Route: 030
     Dates: start: 20100301
  4. FLUTICASONE PROPIONATE [Concomitant]
     Route: 048
  5. SALBUTAMOL SULFATE [Concomitant]
     Route: 048
  6. DOMPERIDONE [Concomitant]
     Route: 048
  7. MONTELUKAST SODIUM [Concomitant]
     Dosage: 1 SACHET ONE IN 24 HOURS
     Route: 048
  8. GEVITAL [Concomitant]
     Indication: COLITIS ULCERATIVE
     Route: 048

REACTIONS (5)
  - DYSPNOEA [None]
  - PNEUMONIA [None]
  - RESPIRATORY SYNCYTIAL VIRUS INFECTION [None]
  - DYSPLASIA [None]
  - FATIGUE [None]
